FAERS Safety Report 25892890 (Version 2)
Quarter: 2025Q4

REPORT INFORMATION
  Report Type: Spontaneous
  Country: JP (occurrence: JP)
  Receive Date: 20251007
  Receipt Date: 20251203
  Transmission Date: 20260118
  Serious: Yes (Other)
  Sender: NOVARTIS
  Company Number: JP-002147023-NVSJ2025JP009816

PATIENT
  Age: 7 Decade
  Sex: Female

DRUGS (3)
  1. BEOVU [Suspect]
     Active Substance: BROLUCIZUMAB-DBLL
     Indication: Diabetic retinal oedema
     Dosage: 6 MG
     Route: 031
     Dates: start: 20250417
  2. BEOVU [Suspect]
     Active Substance: BROLUCIZUMAB-DBLL
     Dosage: 6 MG
     Route: 031
     Dates: start: 20250529
  3. BEOVU [Suspect]
     Active Substance: BROLUCIZUMAB-DBLL
     Dosage: 6 MG
     Route: 031
     Dates: start: 20250710, end: 20250710

REACTIONS (4)
  - Non-infectious endophthalmitis [Recovered/Resolved]
  - Keratic precipitates [Recovered/Resolved]
  - Visual acuity reduced [Unknown]
  - Vision blurred [Unknown]

NARRATIVE: CASE EVENT DATE: 20250714
